FAERS Safety Report 16812218 (Version 2)
Quarter: 2019Q4

REPORT INFORMATION
  Report Type: Spontaneous
  Country: US (occurrence: US)
  Receive Date: 20190916
  Receipt Date: 20191018
  Transmission Date: 20200122
  Serious: Yes (Other)
  Sender: FDA-Public Use
  Company Number: US-SA-2019SA248508

PATIENT
  Age: 80 Year
  Sex: Male

DRUGS (2)
  1. GIMERACIL;OTERACIL POTASSIUM;TEGAFUR [Suspect]
     Active Substance: GIMERACIL\OTERACIL\TEGAFUR
     Indication: GASTRIC CANCER
     Dosage: UNK UNK, Q12H
     Route: 048
     Dates: start: 20180606, end: 20180808
  2. ELPLAT [Suspect]
     Active Substance: OXALIPLATIN
     Indication: GASTRIC CANCER
     Dosage: UNK UNK, QD
     Route: 041
     Dates: start: 20180606, end: 20180808

REACTIONS (5)
  - Chest pain [Recovered/Resolved]
  - Respiratory distress [Recovered/Resolved]
  - Pyrexia [Recovered/Resolved]
  - Pneumonia cytomegaloviral [Recovered/Resolved]
  - Dyspnoea [Recovered/Resolved]
